FAERS Safety Report 5103019-0 (Version None)
Quarter: 2006Q3

REPORT INFORMATION
  Report Type: 
  Country: None (occurrence: None)
  Receive Date: 20060908
  Receipt Date: 20060828
  Transmission Date: 20061208
  Serious: Yes (Other)
  Sender: FDA-Public Use
  Company Number: GXKR2006AT05222

PATIENT
  Age: 52 Year
  Sex: Female
  Weight: 65 kg

DRUGS (27)
  1. PROPRANOLOL [Suspect]
     Indication: HYPERTENSION
     Dosage: 30 MG,
     Dates: start: 19970601, end: 20041001
  2. ASPIRIN [Concomitant]
  3. ALLOPURINOL [Concomitant]
  4. ALPRAZOLAM [Concomitant]
  5. ATROPA BELLADONNA (ATROPA BELLADONNA) [Concomitant]
  6. BEZAFIBRATE (BEZAFIBRATE) [Concomitant]
  7. BISOPROLOL FUMARATE [Concomitant]
  8. BROMAZEPAM (BROMAZEPAM) [Concomitant]
  9. BUDESONIDE [Concomitant]
  10. CANDESARTAN (CANDESARTAN) [Concomitant]
  11. CELECOXIB (CELECOXIB) [Concomitant]
  12. CERIVASTATIN (CERIVASTATIN) [Concomitant]
  13. CHLOROQUINE (CHLOROQUINE) [Concomitant]
  14. CLOMIPRAMINE HCL [Concomitant]
  15. CLOPIDOGREL [Concomitant]
  16. CHOLESTYRAMINE [Concomitant]
  17. CORTICOSTEROIDS (NO INGREDIENTS/SUBSTANCES) [Concomitant]
  18. DIOSMIN (DIOSMIN) [Concomitant]
  19. ESCITALOPRAM OXALATE [Concomitant]
  20. ENALAPRIL MALEATE [Concomitant]
  21. LANSOPRAZOLE [Concomitant]
  22. PAROXETINE [Concomitant]
  23. PRAVASTATIN [Concomitant]
  24. ROSUVASTATIN (ROSUVASTATIN) [Concomitant]
  25. SIMVASTATIN [Concomitant]
  26. TIOTROPIUM BROMIDE (TIOTROPIUM BROMIDE) [Concomitant]
  27. TRAMADOL HCL [Concomitant]

REACTIONS (13)
  - BIOPSY MUSCLE ABNORMAL [None]
  - CONDITION AGGRAVATED [None]
  - DIPLOPIA [None]
  - DYSARTHRIA [None]
  - EYELID PTOSIS [None]
  - HYPERREFLEXIA [None]
  - MITOCHONDRIAL MYOPATHY [None]
  - MUSCLE ATROPHY [None]
  - MUSCLE SPASMS [None]
  - MUSCULAR WEAKNESS [None]
  - MUSCULOSKELETAL STIFFNESS [None]
  - MYALGIA [None]
  - NECK PAIN [None]
